FAERS Safety Report 12984359 (Version 1)
Quarter: 2016Q4

REPORT INFORMATION
  Report Type: Spontaneous
  Country: US (occurrence: US)
  Receive Date: 20161129
  Receipt Date: 20161129
  Transmission Date: 20170207
  Serious: No
  Sender: FDA-Public Use
  Company Number: US-MIKART, INC.-1060195

PATIENT
  Age: 68 Year
  Sex: Female

DRUGS (2)
  1. CHLORZOXAZONE. [Suspect]
     Active Substance: CHLORZOXAZONE
     Indication: BACK PAIN
     Route: 048
  2. TYLENOL [Concomitant]
     Active Substance: ACETAMINOPHEN

REACTIONS (5)
  - Headache [Unknown]
  - Blood pressure measurement [Unknown]
  - Nausea [Unknown]
  - Dizziness [Unknown]
  - Feeling hot [Unknown]
